FAERS Safety Report 14982536 (Version 1)
Quarter: 2018Q2

REPORT INFORMATION
  Report Type: Spontaneous
  Country: US (occurrence: US)
  Receive Date: 20180607
  Receipt Date: 20180607
  Transmission Date: 20180711
  Serious: No
  Sender: FDA-Public Use
  Company Number: US-PFIZER INC-2018232756

PATIENT

DRUGS (3)
  1. DIFLUCAN [Suspect]
     Active Substance: FLUCONAZOLE
     Indication: PNEUMONITIS
  2. DIFLUCAN [Suspect]
     Active Substance: FLUCONAZOLE
     Indication: OSTEOMYELITIS
     Dosage: UNK (LOW DOSE )
  3. ERAXIS [Concomitant]
     Active Substance: ANIDULAFUNGIN
     Dosage: UNK

REACTIONS (1)
  - Drug ineffective [Unknown]
